FAERS Safety Report 9199111 (Version 1)
Quarter: 2013Q1

REPORT INFORMATION
  Report Type: Report from Study
  Country: SI (occurrence: SI)
  Receive Date: 20130329
  Receipt Date: 20130329
  Transmission Date: 20140127
  Serious: Yes (Hospitalization, Other)
  Sender: FDA-Public Use
  Company Number: SI-ASTELLAS-2013US003362

PATIENT
  Sex: Male
  Weight: 80 kg

DRUGS (1)
  1. ERLOTINIB TABLET [Suspect]
     Indication: NON-SMALL CELL LUNG CANCER
     Dosage: 150 MG, UID/QD
     Route: 048
     Dates: start: 20100323

REACTIONS (3)
  - Cerebral disorder [Unknown]
  - Hemiparesis [Unknown]
  - Dizziness [Unknown]
